FAERS Safety Report 12394511 (Version 2)
Quarter: 2016Q3

REPORT INFORMATION
  Report Type: Spontaneous
  Country: JP (occurrence: JP)
  Receive Date: 20160523
  Receipt Date: 20160727
  Transmission Date: 20161109
  Serious: No
  Sender: FDA-Public Use
  Company Number: JP-PFIZER INC-2016265515

PATIENT
  Age: 55 Year
  Sex: Male
  Weight: 70 kg

DRUGS (5)
  1. MAINTATE [Suspect]
     Active Substance: BISOPROLOL FUMARATE
     Indication: ARRHYTHMIA
     Dosage: 0.625 MG, 1X/DAY
     Route: 048
     Dates: start: 20160712
  2. SELARA [Suspect]
     Active Substance: EPLERENONE
     Indication: HYPOKALAEMIA
     Dosage: 50 MG, 1X/DAY
     Route: 048
     Dates: start: 20160420, end: 20160510
  3. TENORMIN [Suspect]
     Active Substance: ATENOLOL
     Dosage: 25 MG, 1X/DAY
     Route: 048
     Dates: start: 20160614, end: 20160711
  4. TENORMIN [Suspect]
     Active Substance: ATENOLOL
     Indication: ARRHYTHMIA
     Dosage: 50 MG, 1X/DAY
     Route: 048
     Dates: start: 20160420, end: 20160613
  5. MEXITIL [Suspect]
     Active Substance: MEXILETINE HYDROCHLORIDE
     Indication: ARRHYTHMIA
     Dosage: 100 MG, 3X/DAY
     Route: 048
     Dates: start: 20160408, end: 20160419

REACTIONS (1)
  - Visual acuity reduced [Recovering/Resolving]

NARRATIVE: CASE EVENT DATE: 201604
